FAERS Safety Report 14211445 (Version 2)
Quarter: 2018Q1

REPORT INFORMATION
  Report Type: Spontaneous
  Country: US (occurrence: US)
  Receive Date: 20171121
  Receipt Date: 20180109
  Transmission Date: 20180508
  Serious: Yes (Hospitalization)
  Sender: FDA-Public Use
  Company Number: US-B.I. PHARMACEUTICALS,INC./RIDGEFIELD-2017-BI-061957

PATIENT
  Age: 66 Year
  Sex: Female
  Weight: 106.59 kg

DRUGS (8)
  1. OFEV [Suspect]
     Active Substance: NINTEDANIB
     Route: 048
     Dates: start: 201510
  2. OMEPRAZOLE. [Concomitant]
     Active Substance: OMEPRAZOLE
     Indication: BARRETT^S OESOPHAGUS
     Route: 048
  3. RANITIDINE. [Concomitant]
     Active Substance: RANITIDINE
     Indication: BARRETT^S OESOPHAGUS
     Route: 048
  4. RANITIDINE. [Concomitant]
     Active Substance: RANITIDINE
     Indication: GASTROOESOPHAGEAL REFLUX DISEASE
  5. OFEV [Suspect]
     Active Substance: NINTEDANIB
     Indication: IDIOPATHIC PULMONARY FIBROSIS
     Route: 048
     Dates: start: 201505, end: 201510
  6. OFEV [Suspect]
     Active Substance: NINTEDANIB
     Route: 065
     Dates: start: 2015, end: 201712
  7. OMEPRAZOLE. [Concomitant]
     Active Substance: OMEPRAZOLE
     Indication: GASTROOESOPHAGEAL REFLUX DISEASE
  8. PREDNISONE. [Concomitant]
     Active Substance: PREDNISONE
     Indication: IDIOPATHIC PULMONARY FIBROSIS
     Route: 048

REACTIONS (7)
  - Contusion [Not Recovered/Not Resolved]
  - Oxygen saturation decreased [Recovered/Resolved]
  - Pneumonia [Unknown]
  - Pleural effusion [Unknown]
  - Nausea [Recovered/Resolved]
  - Pneumonia [Recovered/Resolved]
  - Haemoglobin decreased [Not Recovered/Not Resolved]

NARRATIVE: CASE EVENT DATE: 20170915
